FAERS Safety Report 6867931-4 (Version None)
Quarter: 2010Q3

REPORT INFORMATION
  Report Type: 
  Country: None (occurrence: None)
  Receive Date: 20100722
  Receipt Date: 20100715
  Transmission Date: 20110219
  Serious: Yes (Death)
  Sender: FDA-Public Use
  Company Number: US-SANOFI-AVENTIS-2010SA041373

PATIENT
  Age: 68 Year
  Sex: Female

DRUGS (2)
  1. MULTAQ [Suspect]
     Route: 065
     Dates: start: 20100701
  2. ADVAIR DISKUS 100/50 [Concomitant]

REACTIONS (2)
  - DEATH [None]
  - GASTROINTESTINAL DISORDER [None]
